FAERS Safety Report 18907595 (Version 3)
Quarter: 2021Q2

REPORT INFORMATION
  Report Type: Spontaneous
  Country: JP (occurrence: JP)
  Receive Date: 20210217
  Receipt Date: 20210513
  Transmission Date: 20210717
  Serious: Yes (Hospitalization, Other)
  Sender: FDA-Public Use
  Company Number: JP-BRISTOL-MYERS SQUIBB COMPANY-BMS-2021-010307

PATIENT
  Age: 72 Year
  Sex: Male
  Weight: 55 kg

DRUGS (1)
  1. OPDIVO [Suspect]
     Active Substance: NIVOLUMAB
     Indication: OESOPHAGEAL CARCINOMA
     Dosage: 240 MILLIGRAM
     Route: 041
     Dates: start: 20210127, end: 20210407

REACTIONS (4)
  - Pneumonia [Unknown]
  - Bronchitis [Recovering/Resolving]
  - Malignant neoplasm progression [Unknown]
  - Pneumonia aspiration [Not Recovered/Not Resolved]

NARRATIVE: CASE EVENT DATE: 20210128
